FAERS Safety Report 8234960-8 (Version None)
Quarter: 2012Q1

REPORT INFORMATION
  Report Type: 
  Country: None (occurrence: None)
  Receive Date: 20120326
  Receipt Date: 20120321
  Transmission Date: 20120608
  Serious: Yes (Other)
  Sender: FDA-Public Use
  Company Number: JP-PFIZER INC-2012068830

PATIENT
  Age: 15 Year
  Sex: Female

DRUGS (2)
  1. CORTRIL [Suspect]
     Indication: PITUITARY TUMOUR BENIGN
     Dosage: 10 MG, 2X/DAY
     Route: 048
  2. GROWTH HORMONE AB [Concomitant]
     Indication: PITUITARY TUMOUR BENIGN

REACTIONS (2)
  - PYREXIA [None]
  - MENINGITIS [None]
